FAERS Safety Report 25453022 (Version 2)
Quarter: 2025Q3

REPORT INFORMATION
  Report Type: Spontaneous
  Country: JP (occurrence: JP)
  Receive Date: 20250618
  Receipt Date: 20250805
  Transmission Date: 20251020
  Serious: Yes (Hospitalization)
  Sender: EISAI
  Company Number: JP-Eisai-202503364_LEN-HCC_P_1

PATIENT
  Sex: Male

DRUGS (3)
  1. LENVIMA [Suspect]
     Active Substance: LENVATINIB
     Indication: Hepatocellular carcinoma
     Dates: start: 20250602
  2. LENVIMA [Suspect]
     Active Substance: LENVATINIB
  3. ACTEMRA [Concomitant]
     Active Substance: TOCILIZUMAB
     Indication: Castleman^s disease

REACTIONS (3)
  - Hepatic encephalopathy [Recovered/Resolved]
  - Oedema [Recovered/Resolved]
  - Ascites [Recovering/Resolving]

NARRATIVE: CASE EVENT DATE: 20250613
